FAERS Safety Report 20192028 (Version 2)
Quarter: 2021Q4

REPORT INFORMATION
  Report Type: Spontaneous
  Country: IT (occurrence: IT)
  Receive Date: 20211216
  Receipt Date: 20211229
  Transmission Date: 20220303
  Serious: Yes (Life-Threatening, Hospitalization)
  Sender: FDA-Public Use
  Company Number: IT-TEVA-2021-IT-1986839

PATIENT
  Age: 15 Day
  Sex: Male

DRUGS (13)
  1. LEVETIRACETAM [Suspect]
     Active Substance: LEVETIRACETAM
     Indication: Status epilepticus
     Dosage: 66 MG/KG DAILY;
     Route: 042
  2. PHENOBARBITAL [Suspect]
     Active Substance: PHENOBARBITAL
     Indication: Status epilepticus
     Route: 065
  3. PHENOBARBITAL [Suspect]
     Active Substance: PHENOBARBITAL
     Dosage: 7 MG/KG DAILY;
     Route: 042
  4. PHENYTOIN [Suspect]
     Active Substance: PHENYTOIN
     Indication: Status epilepticus
     Route: 065
  5. PHENYTOIN [Suspect]
     Active Substance: PHENYTOIN
     Dosage: 12 MG/KG DAILY;
     Route: 042
  6. MIDAZOLAM [Suspect]
     Active Substance: MIDAZOLAM
     Indication: Status epilepticus
     Dosage: 24 MG/KG DAILY;
     Route: 050
  7. PROPOFOL [Suspect]
     Active Substance: PROPOFOL
     Indication: Status epilepticus
     Dosage: 72 MG/KG DAILY;
     Route: 050
  8. THIOPENTAL SODIUM [Suspect]
     Active Substance: THIOPENTAL SODIUM
     Indication: Status epilepticus
     Dosage: 120 MG/KG DAILY;
     Route: 050
  9. KETAMINE [Suspect]
     Active Substance: KETAMINE
     Indication: Status epilepticus
     Dosage: 144000 UG/KG DAILY;
     Route: 050
  10. LACOSAMIDE [Concomitant]
     Active Substance: LACOSAMIDE
     Indication: Cerebral venous sinus thrombosis
     Route: 065
  11. LACOSAMIDE [Concomitant]
     Active Substance: LACOSAMIDE
     Indication: Status epilepticus
     Dosage: 8MG/KG
     Route: 040
  12. LACOSAMIDE [Concomitant]
     Active Substance: LACOSAMIDE
     Indication: Arterial thrombosis
     Dosage: 10 MG/KG DAILY;
     Route: 042
  13. LACOSAMIDE [Concomitant]
     Active Substance: LACOSAMIDE
     Route: 048

REACTIONS (1)
  - Drug ineffective [Unknown]
